FAERS Safety Report 23357151 (Version 2)
Quarter: 2024Q1

REPORT INFORMATION
  Report Type: Spontaneous
  Country: DE (occurrence: DE)
  Receive Date: 20240102
  Receipt Date: 20240124
  Transmission Date: 20240410
  Serious: Yes (Other)
  Sender: FDA-Public Use
  Company Number: DE-JNJFOC-20231164193

PATIENT
  Age: 70 Year
  Sex: Female

DRUGS (54)
  1. MELOXICAM [Suspect]
     Active Substance: MELOXICAM
     Indication: Plasma cell myeloma
     Route: 065
  2. MELOXICAM [Suspect]
     Active Substance: MELOXICAM
     Route: 065
  3. DEXAMETHASONE [Suspect]
     Active Substance: DEXAMETHASONE
     Indication: Plasma cell myeloma
     Dosage: UNK, AS A PART OF DARA-KTD-PACE REGIMEN, FIRST
     Route: 065
  4. DEXAMETHASONE [Suspect]
     Active Substance: DEXAMETHASONE
     Dosage: UNK, AS A PART OF DARA-KTD-PACE REGIMEN, SECOND
     Route: 065
  5. DEXAMETHASONE [Suspect]
     Active Substance: DEXAMETHASONE
     Dosage: UNK, AS A PART OF DARA-KTD-PACE REGIMEN, THIRD
     Route: 065
  6. DEXAMETHASONE [Suspect]
     Active Substance: DEXAMETHASONE
     Dosage: UNK, AS A PART OF DARA-KTD-PACE REGIMEN, FIRST
     Route: 065
  7. DEXAMETHASONE [Suspect]
     Active Substance: DEXAMETHASONE
     Dosage: UNK, AS A PART OF DARA-KTD-PACE REGIMEN, SECOND
     Route: 065
  8. DEXAMETHASONE [Suspect]
     Active Substance: DEXAMETHASONE
     Dosage: UNK, AS A PART OF DARA-KTD-PACE REGIMEN, THIRD
     Route: 065
  9. PLATINOL [Suspect]
     Active Substance: CISPLATIN
     Indication: Plasma cell myeloma
     Dosage: UNK, AS A PART OF DARA-KTD-PACE REGIMEN, FIRST
     Route: 065
  10. PLATINOL [Suspect]
     Active Substance: CISPLATIN
     Dosage: UNK, AS A PART OF DARA-KTD-PACE REGIMEN, THIRD
     Route: 065
  11. PLATINOL [Suspect]
     Active Substance: CISPLATIN
     Dosage: UNK, AS A PART OF DARA-KTD-PACE REGIMEN, SECOND
     Route: 065
  12. PLATINOL [Suspect]
     Active Substance: CISPLATIN
     Dosage: UNK, AS A PART OF DARA-KTD-PACE REGIMEN, FIRST
     Route: 065
  13. PLATINOL [Suspect]
     Active Substance: CISPLATIN
     Dosage: UNK, AS A PART OF DARA-KTD-PACE REGIMEN, THIRD
     Route: 065
  14. PLATINOL [Suspect]
     Active Substance: CISPLATIN
     Dosage: UNK, AS A PART OF DARA-KTD-PACE REGIMEN, SECOND
     Route: 065
  15. ETOPOSIDE [Suspect]
     Active Substance: ETOPOSIDE
     Indication: Plasma cell myeloma
     Dosage: UNK, AS A PART OF DARA-KTD-PACE REGIMEN,
     Route: 065
  16. ETOPOSIDE [Suspect]
     Active Substance: ETOPOSIDE
     Dosage: UNK, AS A PART OF DARA-KTD-PACE REGIMEN, SECOND
     Route: 065
  17. ETOPOSIDE [Suspect]
     Active Substance: ETOPOSIDE
     Dosage: UNK, AS A PART OF DARA-KTD-PACE REGIMEN, THIRD
     Route: 065
  18. ETOPOSIDE [Suspect]
     Active Substance: ETOPOSIDE
     Dosage: UNK, AS A PART OF DARA-KTD-PACE REGIMEN,
     Route: 065
  19. ETOPOSIDE [Suspect]
     Active Substance: ETOPOSIDE
     Dosage: UNK, AS A PART OF DARA-KTD-PACE REGIMEN, SECOND
     Route: 065
  20. ETOPOSIDE [Suspect]
     Active Substance: ETOPOSIDE
     Dosage: UNK, AS A PART OF DARA-KTD-PACE REGIMEN, THIRD
     Route: 065
  21. DOXORUBICIN [Suspect]
     Active Substance: DOXORUBICIN
     Indication: Plasma cell myeloma
     Dosage: UNK, AS A PART OF DARA-KTD-PACE REGIMEN,
     Route: 065
  22. DOXORUBICIN [Suspect]
     Active Substance: DOXORUBICIN
     Dosage: UNK, AS A PART OF DARA-KTD-PACE REGIMEN, SECOND
     Route: 065
  23. DOXORUBICIN [Suspect]
     Active Substance: DOXORUBICIN
     Dosage: UNK, AS A PART OF DARA-KTD-PACE REGIMEN, THIRD
     Route: 065
  24. DOXORUBICIN [Suspect]
     Active Substance: DOXORUBICIN
     Dosage: UNK, AS A PART OF DARA-KTD-PACE REGIMEN,
     Route: 065
  25. DOXORUBICIN [Suspect]
     Active Substance: DOXORUBICIN
     Dosage: UNK, AS A PART OF DARA-KTD-PACE REGIMEN, SECOND
     Route: 065
  26. DOXORUBICIN [Suspect]
     Active Substance: DOXORUBICIN
     Dosage: UNK, AS A PART OF DARA-KTD-PACE REGIMEN, THIRD
     Route: 065
  27. CARFILZOMIB [Suspect]
     Active Substance: CARFILZOMIB
     Indication: Plasma cell myeloma
     Dosage: UNK, AS A PART OF DARA-KTD-PACE REGIMEN,
     Route: 065
  28. CARFILZOMIB [Suspect]
     Active Substance: CARFILZOMIB
     Dosage: UNK, AS A PART OF DARA-KTD-PACE REGIMEN, SECOND
     Route: 065
  29. CARFILZOMIB [Suspect]
     Active Substance: CARFILZOMIB
     Dosage: UNK, AS A PART OF DARA-KTD-PACE REGIMEN,
     Route: 065
  30. CARFILZOMIB [Suspect]
     Active Substance: CARFILZOMIB
     Dosage: UNK, AS A PART OF DARA-KTD-PACE REGIMEN,
     Route: 065
  31. CARFILZOMIB [Suspect]
     Active Substance: CARFILZOMIB
     Dosage: UNK, AS A PART OF DARA-KTD-PACE REGIMEN, SECOND
     Route: 065
  32. CARFILZOMIB [Suspect]
     Active Substance: CARFILZOMIB
     Dosage: UNK, AS A PART OF DARA-KTD-PACE REGIMEN,
     Route: 065
  33. CYCLOPHOSPHAMIDE [Suspect]
     Active Substance: CYCLOPHOSPHAMIDE
     Indication: Plasma cell myeloma
     Dosage: UNK, AS A PART OF DARA-KTD-PACE REGIMEN, FIRST
     Route: 065
  34. CYCLOPHOSPHAMIDE [Suspect]
     Active Substance: CYCLOPHOSPHAMIDE
     Dosage: UNK, AS A PART OF DARA-KTD-PACE REGIMEN, SECOND
     Route: 065
  35. CYCLOPHOSPHAMIDE [Suspect]
     Active Substance: CYCLOPHOSPHAMIDE
     Dosage: UNK, AS A PART OF DARA-KTD-PACE REGIMEN,
     Route: 065
  36. CYCLOPHOSPHAMIDE [Suspect]
     Active Substance: CYCLOPHOSPHAMIDE
     Dosage: UNK, AS A PART OF DARA-KTD-PACE REGIMEN, FIRST
     Route: 065
  37. CYCLOPHOSPHAMIDE [Suspect]
     Active Substance: CYCLOPHOSPHAMIDE
     Dosage: UNK, AS A PART OF DARA-KTD-PACE REGIMEN, SECOND
     Route: 065
  38. CYCLOPHOSPHAMIDE [Suspect]
     Active Substance: CYCLOPHOSPHAMIDE
     Dosage: UNK, AS A PART OF DARA-KTD-PACE REGIMEN,
     Route: 065
  39. THALIDOMIDE [Suspect]
     Active Substance: THALIDOMIDE
     Indication: Plasma cell myeloma
     Dosage: UNK, AS A PART OF DARA-KTD-PACE REGIMEN, SECOND
     Route: 065
  40. THALIDOMIDE [Suspect]
     Active Substance: THALIDOMIDE
     Dosage: UNK, AS A PART OF DARA-KTD-PACE REGIMEN, THIRD
     Route: 065
  41. THALIDOMIDE [Suspect]
     Active Substance: THALIDOMIDE
     Dosage: UNK, AS A PART OF DARA-KTD-PACE REGIMEN, FIRST
     Route: 065
  42. THALIDOMIDE [Suspect]
     Active Substance: THALIDOMIDE
     Dosage: UNK, AS A PART OF DARA-KTD-PACE REGIMEN, SECOND
     Route: 065
  43. THALIDOMIDE [Suspect]
     Active Substance: THALIDOMIDE
     Dosage: UNK, AS A PART OF DARA-KTD-PACE REGIMEN, THIRD
     Route: 065
  44. THALIDOMIDE [Suspect]
     Active Substance: THALIDOMIDE
     Dosage: UNK, AS A PART OF DARA-KTD-PACE REGIMEN, FIRST
     Route: 065
  45. DARATUMUMAB [Suspect]
     Active Substance: DARATUMUMAB
     Indication: Plasma cell myeloma
     Dosage: UNK, AS A PART OF DARA-KTD-PACE REGIMEN, FIRST
     Route: 065
  46. DARATUMUMAB [Suspect]
     Active Substance: DARATUMUMAB
     Dosage: UNK, AS A PART OF DARA-KTD-PACE REGIMEN, SECOND
     Route: 065
  47. DARATUMUMAB [Suspect]
     Active Substance: DARATUMUMAB
     Dosage: UNK, AS A PART OF DARA-KTD-PACE REGIMEN, THIRD
     Route: 065
  48. DARATUMUMAB [Suspect]
     Active Substance: DARATUMUMAB
     Dosage: UNK, AS A PART OF DARA-KTD-PACE REGIMEN, FIRST
     Route: 065
  49. DARATUMUMAB [Suspect]
     Active Substance: DARATUMUMAB
     Dosage: UNK, AS A PART OF DARA-KTD-PACE REGIMEN, SECOND
     Route: 065
  50. DARATUMUMAB [Suspect]
     Active Substance: DARATUMUMAB
     Dosage: UNK, AS A PART OF DARA-KTD-PACE REGIMEN, THIRD
     Route: 065
  51. TECVAYLI [Suspect]
     Active Substance: TECLISTAMAB-CQYV
     Indication: Plasma cell myeloma
     Route: 065
  52. TECVAYLI [Suspect]
     Active Substance: TECLISTAMAB-CQYV
     Route: 065
  53. TECLISTAMAB [Suspect]
     Active Substance: TECLISTAMAB
     Indication: Plasma cell myeloma
  54. MELOXICAM [Suspect]
     Active Substance: MELOXICAM
     Indication: Plasma cell myeloma

REACTIONS (4)
  - Cytokine release syndrome [Recovered/Resolved]
  - Intervertebral discitis [Unknown]
  - White blood cell count increased [Unknown]
  - Respiratory tract infection [Unknown]
